FAERS Safety Report 14201848 (Version 1)
Quarter: 2017Q4

REPORT INFORMATION
  Report Type: Spontaneous
  Country: US (occurrence: US)
  Receive Date: 20171117
  Receipt Date: 20171117
  Transmission Date: 20180321
  Serious: Yes (Death)
  Sender: FDA-Public Use
  Company Number: US-SA-2017SA224416

PATIENT
  Age: 53 Year
  Sex: Female

DRUGS (3)
  1. ZOLPIDEM [Suspect]
     Active Substance: ZOLPIDEM\ZOLPIDEM TARTRATE
     Route: 065
  2. VENLAFAXINE [Suspect]
     Active Substance: VENLAFAXINE HYDROCHLORIDE
     Route: 065
  3. INSULIN [Suspect]
     Active Substance: INSULIN NOS
     Route: 065

REACTIONS (5)
  - Brain death [Fatal]
  - Pneumonia aspiration [Fatal]
  - Coma [Fatal]
  - Depressed level of consciousness [Fatal]
  - Toxicity to various agents [Fatal]
